FAERS Safety Report 5567733-5 (Version None)
Quarter: 2007Q4

REPORT INFORMATION
  Report Type: 
  Country: None (occurrence: None)
  Receive Date: 20071218
  Receipt Date: 20071205
  Transmission Date: 20080405
  Serious: Yes (Hospitalization)
  Sender: FDA-Public Use
  Company Number: 2007BI002399

PATIENT
  Age: 39 Year
  Sex: Female

DRUGS (7)
  1. NATALIZUMAB [Suspect]
     Indication: MULTIPLE SCLEROSIS
     Dosage: 300 MG;QM;IV
     Route: 042
     Dates: start: 20061007, end: 20070119
  2. NEURONTIN [Concomitant]
  3. LYRICA [Concomitant]
  4. ZYRTEC [Concomitant]
  5. PROVIGIL [Concomitant]
  6. BACLOFEN [Concomitant]
  7. SKELAXIN [Concomitant]

REACTIONS (6)
  - AMMONIA INCREASED [None]
  - AUTOIMMUNE DISORDER [None]
  - IMMUNE SYSTEM DISORDER [None]
  - LIVER DISORDER [None]
  - MEMORY IMPAIRMENT [None]
  - TRANSIENT ISCHAEMIC ATTACK [None]
